FAERS Safety Report 5781439-9 (Version None)
Quarter: 2008Q2

REPORT INFORMATION
  Report Type: 
  Country: None (occurrence: None)
  Receive Date: 20080623
  Receipt Date: 20070817
  Transmission Date: 20081010
  Serious: No
  Sender: FDA-Public Use
  Company Number: US-ASTRAZENECA-2007UW19882

PATIENT
  Sex: Female
  Weight: 83.5 kg

DRUGS (1)
  1. ENTOCORT EC [Suspect]
     Indication: CROHN'S DISEASE
     Route: 048
     Dates: start: 20070814

REACTIONS (2)
  - ABDOMINAL DISTENSION [None]
  - CHANGE OF BOWEL HABIT [None]
